FAERS Safety Report 5653556-5 (Version None)
Quarter: 2008Q1

REPORT INFORMATION
  Report Type: 
  Country: None (occurrence: None)
  Receive Date: 20080131
  Receipt Date: 20071207
  Transmission Date: 20080703
  Serious: No
  Sender: FDA-Public Use
  Company Number: US200711002363

PATIENT
  Age: 69 Year
  Sex: Female

DRUGS (4)
  1. BYETTA [Suspect]
     Indication: TYPE 2 DIABETES MELLITUS
     Dosage: 5 UG, 2/D, SUBCUTANEOUS
     Route: 058
     Dates: start: 20071103
  2. HUMALOG [Concomitant]
  3. LEVEMIR (INSULIN DETEMIR) [Concomitant]
  4. METFORMIN HCL [Concomitant]

REACTIONS (9)
  - BLOOD GLUCOSE DECREASED [None]
  - BLOOD GLUCOSE INCREASED [None]
  - CHILLS [None]
  - ERYTHEMA [None]
  - FEELING HOT [None]
  - NAUSEA [None]
  - PALPITATIONS [None]
  - VISION BLURRED [None]
  - VOMITING [None]
